FAERS Safety Report 10255869 (Version 1)
Quarter: 2014Q2

REPORT INFORMATION
  Report Type: Spontaneous
  Country: FR (occurrence: FR)
  Receive Date: 20140624
  Receipt Date: 20140624
  Transmission Date: 20141212
  Serious: Yes (Hospitalization)
  Sender: FDA-Public Use
  Company Number: FR-ASTRAZENECA-2014SE45390

PATIENT
  Age: 53 Year
  Sex: Female

DRUGS (14)
  1. INEXIUM [Suspect]
     Route: 048
     Dates: end: 20140220
  2. NORSET [Suspect]
     Route: 048
     Dates: end: 20140220
  3. BACTRIM ADULTES [Suspect]
     Route: 048
     Dates: end: 20140220
  4. ZYLORIC [Suspect]
     Route: 048
     Dates: end: 20140220
  5. ORACILLINE [Suspect]
     Route: 048
     Dates: start: 20140130, end: 20140217
  6. KARDEGIC [Concomitant]
     Route: 048
  7. LOVENOX [Concomitant]
     Route: 058
  8. LYRICA [Concomitant]
     Route: 048
  9. ATARAX [Concomitant]
     Route: 048
  10. ZELITREX [Concomitant]
     Route: 048
  11. RITUXIMAB [Concomitant]
     Dates: start: 20130925
  12. CISPLATINE [Concomitant]
     Dates: start: 20130925
  13. CYTARABINE [Concomitant]
     Dates: start: 20130925
  14. DEXAMETHASONE [Concomitant]
     Dates: start: 20130925

REACTIONS (8)
  - Sepsis [Unknown]
  - Agranulocytosis [Recovered/Resolved]
  - Hepatocellular injury [Unknown]
  - Cholestasis [Unknown]
  - Bone marrow failure [None]
  - Myeloid maturation arrest [None]
  - Eosinophilia [None]
  - Toxicity to various agents [None]
